FAERS Safety Report 15289383 (Version 1)
Quarter: 2018Q3

REPORT INFORMATION
  Report Type: Spontaneous
  Country: HK (occurrence: HK)
  Receive Date: 20180817
  Receipt Date: 20180817
  Transmission Date: 20181010
  Serious: Yes (Other)
  Sender: FDA-Public Use
  Company Number: PHHY2018HK071258

PATIENT
  Age: 50 Year
  Sex: Female

DRUGS (1)
  1. ZYKADIA [Suspect]
     Active Substance: CERITINIB
     Indication: PRODUCT USED FOR UNKNOWN INDICATION
     Dosage: 750 MG, QD
     Route: 065
     Dates: start: 20160812

REACTIONS (9)
  - Metastases to bone [Unknown]
  - Metastases to lung [Unknown]
  - Haemosiderin stain [Unknown]
  - Metastases to central nervous system [Unknown]
  - Lymphadenopathy mediastinal [Unknown]
  - Abdominal pain upper [Unknown]
  - Neoplasm malignant [Unknown]
  - Metastases to pleura [Unknown]
  - Bone lesion [Unknown]
